FAERS Safety Report 6901875-4 (Version None)
Quarter: 2010Q3

REPORT INFORMATION
  Report Type: 
  Country: None (occurrence: None)
  Receive Date: 20100803
  Receipt Date: 20080326
  Transmission Date: 20110219
  Serious: No
  Sender: FDA-Public Use
  Company Number: US-PFIZER INC-2008027272

PATIENT
  Age: 62 Year
  Sex: Female

DRUGS (4)
  1. LYRICA [Suspect]
     Dates: start: 20080101
  2. TRICOR [Concomitant]
  3. LIPITOR [Concomitant]
  4. CELEXA [Concomitant]

REACTIONS (1)
  - RASH [None]
